FAERS Safety Report 10249441 (Version 2)
Quarter: 2014Q2

REPORT INFORMATION
  Report Type: Spontaneous
  Country: JP (occurrence: JP)
  Receive Date: 20140620
  Receipt Date: 20140620
  Transmission Date: 20141212
  Serious: Yes (Hospitalization)
  Sender: FDA-Public Use
  Company Number: PHHY2014JP062113

PATIENT
  Sex: Female

DRUGS (2)
  1. EQUA [Suspect]
     Dosage: 50 MG, BID
     Route: 048
  2. METFORMIN [Suspect]
     Dosage: 250 MG, QID
     Route: 048

REACTIONS (2)
  - Diabetes mellitus [Unknown]
  - Hypoglycaemia [Unknown]
